FAERS Safety Report 8570628-6 (Version None)
Quarter: 2012Q3

REPORT INFORMATION
  Report Type: 
  Country: None (occurrence: None)
  Receive Date: 20120804
  Receipt Date: 20120717
  Transmission Date: 20120928
  Serious: Yes (Hospitalization, Other)
  Sender: FDA-Public Use
  Company Number: US-MERCK-2012SP029683

PATIENT

DRUGS (3)
  1. REBETOL [Suspect]
     Indication: HEPATITIS C
     Dosage: UNK UNK
     Dates: start: 20111213
  2. VICTRELIS [Suspect]
     Indication: HEPATITIS C
     Dosage: UNK UNK
     Dates: start: 20120109
  3. PEG-INTRON [Suspect]
     Indication: HEPATITIS C
     Dosage: UNK UNK
     Dates: start: 20111213

REACTIONS (4)
  - MEMORY IMPAIRMENT [None]
  - OEDEMA PERIPHERAL [None]
  - FLUID RETENTION [None]
  - STAPHYLOCOCCAL INFECTION [None]
